FAERS Safety Report 5979417-X (Version None)
Quarter: 2008Q4

REPORT INFORMATION
  Report Type: 
  Country: None (occurrence: None)
  Receive Date: 20081204
  Receipt Date: 20081127
  Transmission Date: 20090506
  Serious: Yes (Life-Threatening)
  Sender: FDA-Public Use
  Company Number: DE-BAXTER-2008BH013072

PATIENT
  Sex: Male

DRUGS (1)
  1. ALBUMIN (HUMAN) [Suspect]
     Indication: HYPOALBUMINAEMIA
     Route: 042
     Dates: start: 20081111, end: 20081111

REACTIONS (3)
  - HYPOTENSION [None]
  - SHOCK [None]
  - TACHYCARDIA [None]
